FAERS Safety Report 24919550 (Version 1)
Quarter: 2025Q1

REPORT INFORMATION
  Report Type: Report from Study
  Country: US (occurrence: US)
  Receive Date: 20250204
  Receipt Date: 20250204
  Transmission Date: 20250409
  Serious: No
  Sender: EXELIXIS
  Company Number: US-EXELIXIS-CABO-23071642

PATIENT
  Sex: Male

DRUGS (4)
  1. CABOMETYX [Suspect]
     Active Substance: CABOZANTINIB S-MALATE
     Indication: Renal cell carcinoma
     Dosage: 40 MG, QD
     Dates: start: 2020
  2. CABOMETYX [Suspect]
     Active Substance: CABOZANTINIB S-MALATE
     Dosage: 40 MG, QD (FOR 5 DAYS AND 2 DAYS OFF)
     Dates: start: 20231206
  3. LOSARTAN [Concomitant]
     Active Substance: LOSARTAN
  4. FLUTICASONE [Concomitant]
     Active Substance: FLUTICASONE

REACTIONS (7)
  - Abdominal discomfort [Recovered/Resolved]
  - Dry mouth [Not Recovered/Not Resolved]
  - Pruritus [Recovered/Resolved]
  - Blister [Not Recovered/Not Resolved]
  - Muscle strain [Unknown]
  - Respiratory syncytial virus infection [Not Recovered/Not Resolved]
  - Inappropriate schedule of product administration [Unknown]
